FAERS Safety Report 5763590-2 (Version None)
Quarter: 2008Q2

REPORT INFORMATION
  Report Type: 
  Country: None (occurrence: None)
  Receive Date: 20080610
  Receipt Date: 20080602
  Transmission Date: 20081010
  Serious: Yes (Other)
  Sender: FDA-Public Use
  Company Number: PHHY2008BR09655

PATIENT
  Sex: Female

DRUGS (4)
  1. EXELON [Suspect]
     Indication: DEMENTIA ALZHEIMER'S TYPE
     Dosage: 1 DF OF 9 MG, QD
     Route: 062
     Dates: start: 20080401
  2. ATENOLOL [Concomitant]
     Indication: HYPERTENSION
     Dosage: 1 TABLET EVERY MORNING
     Route: 048
  3. SIMVASTATIN [Concomitant]
     Indication: BLOOD CHOLESTEROL
     Dosage: 1 TABLET EVERY NIGHT
     Route: 048
  4. EQUILID [Concomitant]
     Indication: INSOMNIA
     Dosage: 1 TABLET EVERY NIGHT
     Route: 048

REACTIONS (1)
  - HYPERTENSION [None]
